FAERS Safety Report 7718131-7 (Version None)
Quarter: 2011Q3

REPORT INFORMATION
  Report Type: 
  Country: None (occurrence: None)
  Receive Date: 20110830
  Receipt Date: 20110822
  Transmission Date: 20111222
  Serious: Yes (Other)
  Sender: FDA-Public Use
  Company Number: CA-JNJFOC-20110810932

PATIENT
  Sex: Female
  Weight: 89.2 kg

DRUGS (9)
  1. ZOPLICONE [Concomitant]
     Route: 065
  2. REMICADE [Suspect]
     Route: 042
     Dates: start: 20080101
  3. METHOTREXATE [Concomitant]
     Route: 058
  4. PERINDOPRIL ERBUMINE [Concomitant]
     Route: 065
  5. ESCITALOPRAM [Concomitant]
     Route: 065
  6. REMICADE [Suspect]
     Indication: PSORIATIC ARTHROPATHY
     Route: 042
     Dates: start: 20110822
  7. HYDROCHLOROTHIAZIDE [Concomitant]
     Route: 065
  8. CRESTOR [Concomitant]
     Route: 065
  9. FOLIC ACID [Concomitant]
     Route: 065

REACTIONS (5)
  - FLUSHING [None]
  - INFUSION RELATED REACTION [None]
  - CHEST DISCOMFORT [None]
  - OBESITY [None]
  - ARTHRALGIA [None]
